FAERS Safety Report 7492612-6 (Version None)
Quarter: 2011Q2

REPORT INFORMATION
  Report Type: 
  Country: None (occurrence: None)
  Receive Date: 20110519
  Receipt Date: 20110512
  Transmission Date: 20111010
  Serious: Yes (Other)
  Sender: FDA-Public Use
  Company Number: US-US-EMD SERONO, INC.-7057952

PATIENT
  Sex: Female
  Weight: 106 kg

DRUGS (3)
  1. REBIF [Suspect]
     Indication: MULTIPLE SCLEROSIS
     Route: 058
     Dates: start: 20110326, end: 20110401
  2. REBIF [Suspect]
     Route: 058
     Dates: start: 20110425, end: 20110425
  3. REBIF [Suspect]
     Route: 058
     Dates: start: 20110425

REACTIONS (5)
  - SYNCOPE [None]
  - PALPITATIONS [None]
  - INJECTION SITE ERYTHEMA [None]
  - CHILLS [None]
  - MYALGIA [None]
